FAERS Safety Report 20062081 (Version 1)
Quarter: 2021Q4

REPORT INFORMATION
  Report Type: Spontaneous
  Country: CH (occurrence: CH)
  Receive Date: 20211112
  Receipt Date: 20211112
  Transmission Date: 20220304
  Serious: Yes (Hospitalization, Other)
  Sender: FDA-Public Use
  Company Number: None

PATIENT
  Age: 68 Year
  Sex: Female

DRUGS (10)
  1. ACYCLOVIR [Suspect]
     Active Substance: ACYCLOVIR
     Indication: Product used for unknown indication
     Dosage: UNK
     Route: 042
     Dates: start: 20211001, end: 20211014
  2. ACYCLOVIR [Suspect]
     Active Substance: ACYCLOVIR
     Dosage: 700 MG
     Route: 042
     Dates: start: 20211023
  3. VALTREX [Suspect]
     Active Substance: VALACYCLOVIR HYDROCHLORIDE
     Indication: Product used for unknown indication
     Dosage: UNK
     Route: 042
     Dates: start: 20210928, end: 20211014
  4. VALTREX [Suspect]
     Active Substance: VALACYCLOVIR HYDROCHLORIDE
     Dosage: 500 MG
     Route: 048
     Dates: start: 20210919, end: 20211024
  5. PREGABALIN [Suspect]
     Active Substance: PREGABALIN
     Indication: Product used for unknown indication
     Dosage: 150 MG
     Route: 065
     Dates: start: 20211015, end: 20211019
  6. PREGABALIN [Suspect]
     Active Substance: PREGABALIN
     Dosage: 200 MG
     Route: 065
     Dates: start: 20211020
  7. LYRICA [Suspect]
     Active Substance: PREGABALIN
     Indication: Product used for unknown indication
     Dosage: 150 MG
     Route: 065
     Dates: start: 202110, end: 20211014
  8. REVLIMID [Suspect]
     Active Substance: LENALIDOMIDE
     Indication: Product used for unknown indication
     Dosage: UNK (3 WEEKS / MONTH)
     Route: 065
     Dates: start: 2017, end: 202109
  9. PIPERACILLIN SODIUM\TAZOBACTAM SODIUM [Suspect]
     Active Substance: PIPERACILLIN SODIUM\TAZOBACTAM SODIUM
     Indication: Product used for unknown indication
     Dosage: 4.5 G (3 DOSAGE IN TOTAL)
     Route: 065
     Dates: start: 20211017, end: 20211018
  10. MST (MORPHINE SULPHATE) [Concomitant]
     Indication: Product used for unknown indication
     Dosage: UNK
     Route: 065

REACTIONS (1)
  - Agranulocytosis [Not Recovered/Not Resolved]

NARRATIVE: CASE EVENT DATE: 20211003
